FAERS Safety Report 13036632 (Version 1)
Quarter: 2016Q4

REPORT INFORMATION
  Report Type: Spontaneous
  Country: US (occurrence: US)
  Receive Date: 20161216
  Receipt Date: 20161216
  Transmission Date: 20170207
  Serious: No
  Sender: FDA-Public Use
  Company Number: US-PERRIGO-15US013606

PATIENT
  Sex: Female

DRUGS (1)
  1. TIOCONAZOLE. [Suspect]
     Active Substance: TIOCONAZOLE
     Indication: VULVOVAGINAL MYCOTIC INFECTION
     Dosage: 300 MG, SINGLE
     Route: 067
     Dates: start: 201511, end: 201511

REACTIONS (4)
  - Drug ineffective [Unknown]
  - Chemical injury [Unknown]
  - Vaginal haemorrhage [Unknown]
  - Vulvovaginal burning sensation [Unknown]

NARRATIVE: CASE EVENT DATE: 201511
